FAERS Safety Report 16991642 (Version 2)
Quarter: 2019Q4

REPORT INFORMATION
  Report Type: Spontaneous
  Country: DE (occurrence: DE)
  Receive Date: 20191104
  Receipt Date: 20191204
  Transmission Date: 20200122
  Serious: Yes (Other)
  Sender: FDA-Public Use
  Company Number: ALC2019DE001233

PATIENT

DRUGS (2)
  1. THILORBIN [Suspect]
     Active Substance: BENOXINATE HYDROCHLORIDE\FLUORESCEIN SODIUM
     Indication: OPHTHALMOLOGICAL EXAMINATION
     Dosage: AM AUGE ANGEWANDT, VON 10/16 BIS 01/17 13 MAL ANGEWENDET;
     Route: 065
  2. FLUORESCEIN SODIUM. [Suspect]
     Active Substance: FLUORESCEIN SODIUM
     Indication: PRODUCT USED FOR UNKNOWN INDICATION
     Dosage: UNK
     Route: 065
     Dates: end: 20190920

REACTIONS (36)
  - Sjogren^s syndrome [Not Recovered/Not Resolved]
  - Optic disc disorder [Not Recovered/Not Resolved]
  - Eye inflammation [Not Recovered/Not Resolved]
  - Eye allergy [Unknown]
  - Dry eye [Not Recovered/Not Resolved]
  - Swelling [Not Recovered/Not Resolved]
  - Adrenal adenoma [Not Recovered/Not Resolved]
  - Angina pectoris [Unknown]
  - Haemangioma of liver [Not Recovered/Not Resolved]
  - Renal cyst [Not Recovered/Not Resolved]
  - Spinal pain [Not Recovered/Not Resolved]
  - Paraesthesia [Unknown]
  - Nausea [Unknown]
  - Dizziness [Unknown]
  - Lenticular opacities [Unknown]
  - Corneal opacity [Unknown]
  - Chest pain [Unknown]
  - Neck pain [Not Recovered/Not Resolved]
  - Eye disorder [Not Recovered/Not Resolved]
  - Muscle twitching [Unknown]
  - Chills [Unknown]
  - Episcleritis [Unknown]
  - Blood pressure abnormal [Unknown]
  - Headache [Unknown]
  - Laryngeal pain [Unknown]
  - Meibomian gland dysfunction [Not Recovered/Not Resolved]
  - Cardiac valve disease [Not Recovered/Not Resolved]
  - Language disorder [Unknown]
  - Eye pain [Not Recovered/Not Resolved]
  - Conjunctivitis [Unknown]
  - Hepatic cyst [Not Recovered/Not Resolved]
  - Visual acuity reduced [Unknown]
  - Ocular hypertension [Not Recovered/Not Resolved]
  - Arrhythmia [Unknown]
  - Eczema [Unknown]
  - Splenomegaly [Not Recovered/Not Resolved]
